FAERS Safety Report 7991768-6 (Version None)
Quarter: 2011Q4

REPORT INFORMATION
  Report Type: 
  Country: None (occurrence: None)
  Receive Date: 20111219
  Receipt Date: 20111205
  Transmission Date: 20120403
  Serious: Yes (Hospitalization, Other)
  Sender: FDA-Public Use
  Company Number: PHHY2010CA47978

PATIENT
  Sex: Female

DRUGS (7)
  1. COUMADIN [Concomitant]
     Dosage: 2.5 MG QD
  2. COUMADIN [Concomitant]
     Dosage: 2.5 MG QD (X5DAYS) AND 5 MG (2DAYS.)
  3. OXYCONTIN [Concomitant]
  4. WARFARIN SODIUM [Concomitant]
     Indication: ATRIAL FIBRILLATION
  5. SANDOSTATIN LAR [Suspect]
     Indication: CARCINOID TUMOUR
     Dosage: 20 MG, EVERY 4 WEEKS
     Route: 030
     Dates: start: 20100705
  6. SANDOSTATIN LAR [Suspect]
     Dosage: 20 MG, EVERY 4 WEEKS
     Route: 030
     Dates: start: 20101029
  7. ANTIHYPERTENSIVE DRUGS [Concomitant]

REACTIONS (20)
  - PYREXIA [None]
  - 5-HYDROXYINDOLACETIC ACID INCREASED [None]
  - INJURY ASSOCIATED WITH DEVICE [None]
  - HOT FLUSH [None]
  - MALAISE [None]
  - VOMITING [None]
  - INJECTION SITE PAIN [None]
  - FEELING HOT [None]
  - CONSTIPATION [None]
  - INJECTION SITE DISCOLOURATION [None]
  - CONTUSION [None]
  - INFLUENZA [None]
  - NAUSEA [None]
  - TOXICITY TO VARIOUS AGENTS [None]
  - SKIN DISCOLOURATION [None]
  - INTERNATIONAL NORMALISED RATIO INCREASED [None]
  - HEADACHE [None]
  - INJECTION SITE MASS [None]
  - HAEMORRHAGE [None]
  - HYPERTENSION [None]
